FAERS Safety Report 5240385-X (Version None)
Quarter: 2007Q1

REPORT INFORMATION
  Report Type: 
  Country: None (occurrence: None)
  Receive Date: 20061208
  Receipt Date: 20050722
  Transmission Date: 20070707
  Serious: Yes (Other)
  Sender: FDA-Public Use
  Company Number: 2005UW10950

PATIENT
  Age: 50 Year
  Sex: Male
  Weight: 121.56 kg

DRUGS (2)
  1. CRESTOR [Suspect]
     Indication: BLOOD CHOLESTEROL INCREASED
     Dosage: 10 MG PO
     Route: 048
     Dates: start: 20050716
  2. LOTREL [Concomitant]

REACTIONS (4)
  - ASTHENIA [None]
  - INFECTION [None]
  - MALAISE [None]
  - PHARYNGOLARYNGEAL PAIN [None]
